FAERS Safety Report 16860784 (Version 1)
Quarter: 2019Q3

REPORT INFORMATION
  Report Type: Spontaneous
  Country: DK (occurrence: DK)
  Receive Date: 20190927
  Receipt Date: 20190927
  Transmission Date: 20191005
  Serious: Yes (Hospitalization)
  Sender: FDA-Public Use
  Company Number: DK-MYLANLABS-2019M1089642

PATIENT
  Age: 46 Year
  Sex: Male

DRUGS (1)
  1. OLANZAPINE. [Suspect]
     Active Substance: OLANZAPINE
     Indication: SCHIZOPHRENIA
     Dosage: DOSIS: VARIERENDE STYRKE:  VARIERENDE
     Route: 048
     Dates: start: 2009

REACTIONS (5)
  - Coronary artery stenosis [Recovered/Resolved]
  - Cardiac fibrillation [Recovered/Resolved]
  - Chest pain [Recovered/Resolved]
  - Heart rate increased [Recovered/Resolved]
  - Increased appetite [Unknown]

NARRATIVE: CASE EVENT DATE: 201807
